FAERS Safety Report 19823819 (Version 7)
Quarter: 2021Q4

REPORT INFORMATION
  Report Type: Spontaneous
  Country: IT (occurrence: IT)
  Receive Date: 20210913
  Receipt Date: 20211117
  Transmission Date: 20220303
  Serious: Yes (Life-Threatening, Hospitalization)
  Sender: FDA-Public Use
  Company Number: IT-CELGENE-ITA-20210809403

PATIENT
  Age: 77 Year
  Sex: Male

DRUGS (19)
  1. AZACITIDINE [Suspect]
     Active Substance: AZACITIDINE
     Indication: Acute myeloid leukaemia
     Route: 065
     Dates: start: 20210628
  2. VENETOCLAX [Suspect]
     Active Substance: VENETOCLAX
     Indication: Acute myeloid leukaemia
     Route: 048
     Dates: start: 20210628, end: 20210718
  3. PEVONEDISTAT [Suspect]
     Active Substance: PEVONEDISTAT
     Indication: Acute myeloid leukaemia
     Route: 065
     Dates: start: 20210628, end: 20210718
  4. MEROPENEM [Concomitant]
     Active Substance: MEROPENEM
     Indication: Product used for unknown indication
     Route: 065
     Dates: start: 20210610, end: 20210623
  5. NADROPARIN CALCIUM [Concomitant]
     Active Substance: NADROPARIN CALCIUM
     Indication: Thrombosis prophylaxis
     Route: 065
     Dates: start: 20210728, end: 20210818
  6. NADROPARIN CALCIUM [Concomitant]
     Active Substance: NADROPARIN CALCIUM
     Route: 065
     Dates: start: 20210612, end: 20210708
  7. NALOXONE HYDROCHLORIDE\OXYCODONE HYDROCHLORIDE [Concomitant]
     Active Substance: NALOXONE HYDROCHLORIDE\OXYCODONE HYDROCHLORIDE
     Indication: Product used for unknown indication
     Route: 065
     Dates: start: 20210604, end: 20210704
  8. OMEPRAZOLE [Concomitant]
     Active Substance: OMEPRAZOLE
     Indication: Prophylaxis
     Route: 065
     Dates: start: 20210604, end: 20210810
  9. LASIX [Concomitant]
     Active Substance: FUROSEMIDE
     Indication: Product used for unknown indication
     Route: 065
     Dates: start: 20210603, end: 20210619
  10. CYTARABINE [Concomitant]
     Active Substance: CYTARABINE
     Indication: Cytoreductive surgery
     Route: 065
     Dates: start: 20210817
  11. CYTARABINE [Concomitant]
     Active Substance: CYTARABINE
     Indication: Hyperleukocytosis
  12. HYDROXYUREA [Concomitant]
     Active Substance: HYDROXYUREA
     Indication: Leukocytosis
     Route: 065
     Dates: start: 20210816
  13. TAPENTADOL [Concomitant]
     Active Substance: TAPENTADOL
     Indication: Leukocytosis
     Route: 065
     Dates: start: 20210816
  14. PREGABALIN [Concomitant]
     Active Substance: PREGABALIN
     Indication: Leukocytosis
     Route: 065
     Dates: start: 20210816
  15. AMIODARONE [Concomitant]
     Active Substance: AMIODARONE
     Indication: Atrial fibrillation
     Route: 065
     Dates: start: 20210818, end: 20210819
  16. AMIODARONE [Concomitant]
     Active Substance: AMIODARONE
     Indication: Respiratory failure
     Route: 065
     Dates: start: 20210820
  17. AMIODARONE [Concomitant]
     Active Substance: AMIODARONE
     Indication: Pleural effusion
  18. TARGOSID [Concomitant]
     Active Substance: TEICOPLANIN
     Indication: Infection prophylaxis
     Route: 065
     Dates: start: 20210614, end: 20210621
  19. NALOXONE HYDROCHLORIDE [Concomitant]
     Active Substance: NALOXONE HYDROCHLORIDE
     Indication: Pain
     Route: 065
     Dates: start: 20210604, end: 20210704

REACTIONS (1)
  - Pyrexia [Recovered/Resolved]

NARRATIVE: CASE EVENT DATE: 20210719
